FAERS Safety Report 7352878-X (Version None)
Quarter: 2011Q1

REPORT INFORMATION
  Report Type: 
  Country: None (occurrence: None)
  Receive Date: 20110315
  Receipt Date: 20110304
  Transmission Date: 20110831
  Serious: No
  Sender: FDA-Public Use
  Company Number: US-JNJFOC-20110303569

PATIENT
  Sex: Male

DRUGS (18)
  1. FENTANYL-100 [Suspect]
     Route: 062
  2. FENTANYL-100 [Suspect]
     Route: 062
  3. FENTANYL-100 [Suspect]
     Indication: SCOLIOSIS
     Route: 062
  4. FENTANYL-100 [Suspect]
     Route: 062
  5. FENTANYL-100 [Suspect]
     Route: 062
  6. FENTANYL-100 [Suspect]
     Indication: GASTROINTESTINAL STENOSIS
     Route: 062
  7. FENTANYL-100 [Suspect]
     Route: 062
  8. FENTANYL-100 [Suspect]
     Route: 062
  9. FENTANYL-100 [Suspect]
     Route: 062
  10. FENTANYL-100 [Suspect]
     Route: 062
  11. FENTANYL-100 [Suspect]
     Route: 062
  12. FENTANYL-100 [Suspect]
     Route: 062
  13. FENTANYL-100 [Suspect]
     Route: 062
  14. FENTANYL-100 [Suspect]
     Indication: SPINAL OSTEOARTHRITIS
     Route: 062
  15. FENTANYL-100 [Suspect]
     Route: 062
  16. FENTANYL-100 [Suspect]
     Route: 062
  17. FENTANYL-100 [Suspect]
     Route: 062
  18. FENTANYL-100 [Suspect]
     Route: 062

REACTIONS (2)
  - INCORRECT DRUG ADMINISTRATION DURATION [None]
  - WRONG TECHNIQUE IN DRUG USAGE PROCESS [None]
